FAERS Safety Report 6679553-9 (Version None)
Quarter: 2010Q2

REPORT INFORMATION
  Report Type: 
  Country: None (occurrence: None)
  Receive Date: 20100413
  Receipt Date: 20100405
  Transmission Date: 20101027
  Serious: Yes (Other)
  Sender: FDA-Public Use
  Company Number: PHHY2009CA34947

PATIENT
  Sex: Female

DRUGS (1)
  1. SANDOSTATIN LAR [Suspect]
     Indication: ACROMEGALY
     Dosage: 10 MG, QMO
     Route: 030
     Dates: start: 20090721

REACTIONS (11)
  - ABDOMINAL DISCOMFORT [None]
  - ABDOMINAL DISTENSION [None]
  - ABDOMINAL PAIN [None]
  - CONSTIPATION [None]
  - DIARRHOEA [None]
  - FLATULENCE [None]
  - LOOSE TOOTH [None]
  - MOVEMENT DISORDER [None]
  - TOOTH EXTRACTION [None]
  - VOMITING [None]
  - WAIST CIRCUMFERENCE INCREASED [None]
